FAERS Safety Report 4764699-2 (Version None)
Quarter: 2005Q3

REPORT INFORMATION
  Report Type: 
  Country: None (occurrence: None)
  Receive Date: 20050907
  Receipt Date: 20050830
  Transmission Date: 20060218
  Serious: Yes (Death, Other)
  Sender: FDA-Public Use
  Company Number: 163-20785-05010210

PATIENT
  Age: 55 Year
  Sex: Male

DRUGS (3)
  1. THALOMID [Suspect]
     Indication: METASTATIC RENAL CELL CARCINOMA
     Dosage: SEE IMAGE
     Route: 048
     Dates: start: 20041216, end: 20050108
  2. THALOMID [Suspect]
     Indication: METASTATIC RENAL CELL CARCINOMA
     Dosage: SEE IMAGE
     Route: 048
     Dates: start: 20050109, end: 20050303
  3. THALOMID [Suspect]

REACTIONS (14)
  - ANAEMIA [None]
  - CONSTIPATION [None]
  - DRUG INTOLERANCE [None]
  - FATIGUE [None]
  - GENERALISED OEDEMA [None]
  - LETHARGY [None]
  - LEUKOPENIA [None]
  - MALIGNANT NEOPLASM PROGRESSION [None]
  - METASTATIC RENAL CELL CARCINOMA [None]
  - NAUSEA [None]
  - NEUROPATHY PERIPHERAL [None]
  - OEDEMA PERIPHERAL [None]
  - PITTING OEDEMA [None]
  - VOMITING [None]
